FAERS Safety Report 4415993-6 (Version None)
Quarter: 2004Q3

REPORT INFORMATION
  Report Type: 
  Country: None (occurrence: None)
  Receive Date: 20040804
  Receipt Date: 20040804
  Transmission Date: 20050211
  Serious: No
  Sender: FDA-Public Use
  Company Number: None

PATIENT
  Sex: Female

DRUGS (1)
  1. LORATADINE [Suspect]
     Indication: RHINITIS SEASONAL
     Dosage: 10 MG PRN
     Dates: start: 20040401

REACTIONS (1)
  - CHEST PAIN [None]
